FAERS Safety Report 6379038-3 (Version None)
Quarter: 2009Q3

REPORT INFORMATION
  Report Type: 
  Country: None (occurrence: None)
  Receive Date: 20090928
  Receipt Date: 20090901
  Transmission Date: 20100115
  Serious: No
  Sender: FDA-Public Use
  Company Number: US-BAYER-200914160BCC

PATIENT
  Age: 54 Year
  Sex: Female
  Weight: 50 kg

DRUGS (4)
  1. ALEVE (CAPLET) [Suspect]
     Indication: PROCEDURAL PAIN
     Dosage: TOTAL DAILY DOSE: 880 MG  UNIT DOSE: 220 MG
     Route: 048
     Dates: start: 20090831
  2. AMBIEN [Concomitant]
     Route: 065
  3. XANAX [Concomitant]
     Route: 065
  4. TRAMADOL HCL [Concomitant]
     Route: 065

REACTIONS (1)
  - DIZZINESS [None]
